FAERS Safety Report 4880158-0 (Version None)
Quarter: 2006Q1

REPORT INFORMATION
  Report Type: 
  Country: None (occurrence: None)
  Receive Date: 20060111
  Receipt Date: 20051221
  Transmission Date: 20060701
  Serious: Yes (Other)
  Sender: FDA-Public Use
  Company Number: US_0509121533

PATIENT
  Age: 47 Year
  Sex: Male
  Weight: 93.4 kg

DRUGS (1)
  1. ZYPREXA [Suspect]
     Indication: BIPOLAR DISORDER
     Dosage: SEE IMAGE, ORAL
     Route: 048
     Dates: start: 20020601, end: 20050101

REACTIONS (4)
  - DIABETES MELLITUS [None]
  - HAEMORRHOIDS [None]
  - LOWER GASTROINTESTINAL HAEMORRHAGE [None]
  - PANCREATITIS [None]
